FAERS Safety Report 11178453 (Version 2)
Quarter: 2018Q1

REPORT INFORMATION
  Report Type: Spontaneous
  Country: ES (occurrence: ES)
  Receive Date: 20150610
  Receipt Date: 20180321
  Transmission Date: 20180508
  Serious: Yes (Hospitalization, Other)
  Sender: FDA-Public Use
  Company Number: ES-BAYER-2015-303670

PATIENT
  Age: 56 Year
  Sex: Male

DRUGS (3)
  1. PRASUGREL. [Concomitant]
     Active Substance: PRASUGREL
     Indication: ANTIPLATELET THERAPY
     Dosage: UNK
  2. FLURBIPROFEN. [Suspect]
     Active Substance: FLURBIPROFEN
     Dosage: 50 MG, QD
     Route: 048
  3. ACETYLSALICYLIC ACID (} 100 MG) [Suspect]
     Active Substance: ASPIRIN
     Indication: IMMUNE TOLERANCE INDUCTION
     Dosage: UNK UNK, UNK

REACTIONS (1)
  - Angioedema [Recovered/Resolved]
